FAERS Safety Report 9795591 (Version 2)
Quarter: 2014Q2

REPORT INFORMATION
  Report Type: Spontaneous
  Country: US (occurrence: US)
  Receive Date: 20140103
  Receipt Date: 20140530
  Transmission Date: 20141212
  Serious: No
  Sender: FDA-Public Use
  Company Number: US-009507513-1312USA002661

PATIENT
  Age: 81 Year
  Sex: Female
  Weight: 68.27 kg

DRUGS (2)
  1. MIRALAX [Suspect]
     Indication: OBSTRUCTION
     Dosage: UNK UNK, QD
     Route: 048
     Dates: start: 201309
  2. MIRALAX [Suspect]
     Dosage: UNK, UNKNOWN
     Route: 048
     Dates: start: 201311

REACTIONS (3)
  - Prescribed overdose [Unknown]
  - Incorrect drug administration duration [Unknown]
  - Off label use [Unknown]
